FAERS Safety Report 7412141-5 (Version None)
Quarter: 2011Q2

REPORT INFORMATION
  Report Type: 
  Country: None (occurrence: None)
  Receive Date: 20110405
  Receipt Date: 20110321
  Transmission Date: 20111010
  Serious: Yes (Other)
  Sender: FDA-Public Use
  Company Number: AUR-APL-2011-01086

PATIENT
  Age: 61 Year
  Sex: Male

DRUGS (2)
  1. CEFAZOLIN [Suspect]
     Indication: CATHETER SITE INFECTION
     Dosage: INTRAPERITONEAL
     Route: 033
     Dates: start: 20000101
  2. GENTAMICIN [Suspect]
     Indication: CATHETER SITE INFECTION
     Dosage: INTRAPERITONEAL
     Route: 033

REACTIONS (3)
  - BLOOD PRESSURE INCREASED [None]
  - DRUG INEFFECTIVE [None]
  - ABDOMINAL PAIN [None]
